FAERS Safety Report 7965982-X (Version None)
Quarter: 2011Q4

REPORT INFORMATION
  Report Type: 
  Country: None (occurrence: None)
  Receive Date: 20111208
  Receipt Date: 20111128
  Transmission Date: 20120403
  Serious: Yes (Hospitalization)
  Sender: FDA-Public Use
  Company Number: US-JNJFOC-20110706253

PATIENT
  Sex: Male
  Weight: 51 kg

DRUGS (8)
  1. PROBIOTICS [Concomitant]
  2. MIRALAX [Concomitant]
  3. REMICADE [Suspect]
     Indication: CROHN'S DISEASE
     Route: 042
     Dates: start: 20090421
  4. MESALAMINE [Concomitant]
  5. FERROUS SULFATE TAB [Concomitant]
  6. DULCOLAX [Concomitant]
  7. CALCIUM/VITAMIN D/VITAMIN K [Concomitant]
  8. VITAMIN D [Concomitant]

REACTIONS (1)
  - CROHN'S DISEASE [None]
